FAERS Safety Report 24813734 (Version 1)
Quarter: 2025Q1

REPORT INFORMATION
  Report Type: Spontaneous
  Country: US (occurrence: US)
  Receive Date: 20250107
  Receipt Date: 20250107
  Transmission Date: 20250409
  Serious: Yes (Death, Other)
  Sender: ABBVIE
  Company Number: US-ABBVIE-6072476

PATIENT
  Sex: Male

DRUGS (1)
  1. RINVOQ [Suspect]
     Active Substance: UPADACITINIB
     Indication: Product used for unknown indication
     Route: 048

REACTIONS (7)
  - Death [Fatal]
  - Hodgkin^s disease [Unknown]
  - Skin ulcer [Unknown]
  - Thrombosis [Unknown]
  - Dehydration [Unknown]
  - Mental disorder [Unknown]
  - Inflammation [Unknown]
